FAERS Safety Report 7145247-9 (Version None)
Quarter: 2010Q4

REPORT INFORMATION
  Report Type: 
  Country: None (occurrence: None)
  Receive Date: 20101208
  Receipt Date: 20101203
  Transmission Date: 20110411
  Serious: Yes (Hospitalization)
  Sender: FDA-Public Use
  Company Number: FR-AMGEN-FRANI2010000665

PATIENT

DRUGS (10)
  1. DARBEPOETIN ALFA [Suspect]
     Indication: RENAL FAILURE CHRONIC
     Dosage: 30 MG, Q2WK
     Route: 058
     Dates: start: 20090404
  2. LOVENOX [Concomitant]
  3. UN ALFA [Concomitant]
     Dosage: 1 A?G, TID
  4. RENITEC                            /00574901/ [Concomitant]
     Dosage: 1 DF, QD
     Route: 048
  5. NORDITROPINE SIMPLEXX [Concomitant]
     Dosage: 3.3 MG, QD
  6. MICOFENOLATO MOFETIL G [Concomitant]
     Dosage: 1 DF, QD
  7. KAYEXALATE [Concomitant]
  8. DEDROGYL [Concomitant]
     Dosage: UNK UNK, QD
  9. CALCIUM CARBONATE [Concomitant]
     Dosage: 2 DF, TID
  10. SODIUM BICARBONATE [Concomitant]
     Dosage: 250 MG, TID

REACTIONS (1)
  - HAEMATURIA [None]
